FAERS Safety Report 6720479-X (Version None)
Quarter: 2010Q2

REPORT INFORMATION
  Report Type: 
  Country: None (occurrence: None)
  Receive Date: 20100506
  Receipt Date: 20100422
  Transmission Date: 20101027
  Serious: Yes (Other)
  Sender: FDA-Public Use
  Company Number: 229-20484-09121767

PATIENT
  Sex: Female
  Weight: 2.17 kg

DRUGS (3)
  1. INNOHEP [Suspect]
     Indication: MATERNAL DRUGS AFFECTING FOETUS
     Dosage: TRANSPLACENTAL
     Route: 064
     Dates: start: 20051109
  2. MEPERIDINE HCL [Concomitant]
  3. PHENERGAN HCL [Concomitant]

REACTIONS (5)
  - CAESAREAN SECTION [None]
  - MATERNAL DRUGS AFFECTING FOETUS [None]
  - PREMATURE BABY [None]
  - PREMATURE LABOUR [None]
  - SMALL FOR DATES BABY [None]
